FAERS Safety Report 18623296 (Version 1)
Quarter: 2020Q4

REPORT INFORMATION
  Report Type: Spontaneous
  Country: GY (occurrence: GY)
  Receive Date: 20201216
  Receipt Date: 20201216
  Transmission Date: 20210114
  Serious: Yes (Death, Hospitalization, Other)
  Sender: FDA-Public Use
  Company Number: GY-BAYER-2020-271248

PATIENT
  Sex: Male

DRUGS (3)
  1. ULTRAVIST [Suspect]
     Active Substance: IOPROMIDE
     Indication: MYOCARDIAL INFARCTION
  2. ULTRAVIST [Suspect]
     Active Substance: IOPROMIDE
     Indication: CEREBROVASCULAR ACCIDENT
  3. ULTRAVIST [Suspect]
     Active Substance: IOPROMIDE
     Indication: COMPUTERISED TOMOGRAM HEAD
     Dosage: UNK, ONCE
     Route: 042

REACTIONS (3)
  - Adrenergic syndrome [Fatal]
  - Cardiac arrest [Fatal]
  - Hypersensitivity [Fatal]
